FAERS Safety Report 20712288 (Version 2)
Quarter: 2022Q2

REPORT INFORMATION
  Report Type: Spontaneous
  Country: PA (occurrence: PA)
  Receive Date: 20220415
  Receipt Date: 20220524
  Transmission Date: 20220721
  Serious: Yes (Hospitalization)
  Sender: FDA-Public Use
  Company Number: PA-PFIZER INC-202200524088

PATIENT
  Age: 43 Year
  Sex: Female

DRUGS (3)
  1. LORBRENA [Suspect]
     Active Substance: LORLATINIB
     Dosage: 100 MG, 1X/DAY
     Dates: start: 202112, end: 202203
  2. MORPHINE [Concomitant]
     Active Substance: MORPHINE
  3. GABAPENTIN [Concomitant]
     Active Substance: GABAPENTIN

REACTIONS (3)
  - Haemoglobin decreased [Unknown]
  - Blood calcium increased [Unknown]
  - Ulcer [Unknown]

NARRATIVE: CASE EVENT DATE: 20220301
